FAERS Safety Report 9888511 (Version 3)
Quarter: 2014Q3

REPORT INFORMATION
  Report Type: Spontaneous
  Country: US (occurrence: US)
  Receive Date: 20140211
  Receipt Date: 20140725
  Transmission Date: 20150326
  Serious: Yes (Hospitalization)
  Sender: FDA-Public Use
  Company Number: US-BAYER-2014-019776

PATIENT
  Age: 20 Year
  Sex: Female
  Weight: 54.42 kg

DRUGS (4)
  1. LORTAB [Concomitant]
     Active Substance: ACETAMINOPHEN\HYDROCODONE BITARTRATE
  2. MOTRIN [Concomitant]
     Active Substance: IBUPROFEN
  3. PRENATAL VITAMINS [Concomitant]
     Active Substance: VITAMINS
  4. MIRENA [Suspect]
     Active Substance: LEVONORGESTREL
     Indication: CONTRACEPTION
     Dosage: 20 MCG/24HR, CONT
     Route: 015
     Dates: start: 20100126, end: 20111102

REACTIONS (6)
  - Abdominal pain [None]
  - Injury [None]
  - Emotional distress [None]
  - Pelvic pain [None]
  - Depression [None]
  - Uterine perforation [None]

NARRATIVE: CASE EVENT DATE: 201110
